FAERS Safety Report 8822273 (Version 1)
Quarter: 2012Q4

REPORT INFORMATION
  Report Type: 
  Country: BR (occurrence: BR)
  Receive Date: 20121003
  Receipt Date: 20121003
  Transmission Date: 20130627
  Serious: Yes (Other)
  Sender: FDA-Public Use
  Company Number: PHHY2012BR085229

PATIENT
  Sex: Female

DRUGS (4)
  1. SANDOSTATIN LAR [Suspect]
     Indication: ACROMEGALY
     Dosage: UNK UKN, UNK
     Dates: start: 2007
  2. INSULIN [Concomitant]
     Indication: DIABETES MELLITUS
     Dosage: 01 DF, TID
  3. METFORMIN [Concomitant]
  4. ANTIDEPRESSANTS [Concomitant]

REACTIONS (6)
  - Neoplasm recurrence [Unknown]
  - Depression [Recovering/Resolving]
  - Diabetes mellitus inadequate control [Not Recovered/Not Resolved]
  - Exposure during pregnancy [Unknown]
  - Abortion spontaneous [Unknown]
  - Wrong technique in drug usage process [Unknown]
